FAERS Safety Report 7095202-2 (Version None)
Quarter: 2010Q4

REPORT INFORMATION
  Report Type: 
  Country: None (occurrence: None)
  Receive Date: 20101111
  Receipt Date: 20101027
  Transmission Date: 20110411
  Serious: Yes (Other)
  Sender: FDA-Public Use
  Company Number: JP-JNJFOC-20100905110

PATIENT
  Age: 62 Year
  Sex: Female

DRUGS (4)
  1. LEVOFLOXACIN [Suspect]
     Indication: OTITIS MEDIA
     Route: 048
  2. BLOPRESS [Concomitant]
     Indication: ILL-DEFINED DISORDER
     Route: 065
  3. ATENOLOL [Concomitant]
     Indication: ILL-DEFINED DISORDER
     Route: 065
  4. CORINAEL [Concomitant]
     Indication: ILL-DEFINED DISORDER
     Route: 065

REACTIONS (3)
  - ANAPHYLACTOID REACTION [None]
  - CHILLS [None]
  - VOMITING [None]
